FAERS Safety Report 9125207 (Version 1)
Quarter: 2013Q1

REPORT INFORMATION
  Report Type: Spontaneous
  Country: None (occurrence: US)
  Receive Date: 20130117
  Receipt Date: 20130117
  Transmission Date: 20140127
  Serious: No
  Sender: FDA-Public Use
  Company Number: US-TEVA-381220USA

PATIENT
  Sex: 0

DRUGS (1)
  1. QNASL [Suspect]

REACTIONS (1)
  - Nasal discomfort [Unknown]
